FAERS Safety Report 21229305 (Version 2)
Quarter: 2022Q3

REPORT INFORMATION
  Report Type: Report from Study
  Country: US (occurrence: US)
  Receive Date: 20220818
  Receipt Date: 20220913
  Transmission Date: 20221026
  Serious: Yes (Hospitalization)
  Sender: FDA-Public Use
  Company Number: US-ABBVIE-22K-163-4504362-00

PATIENT
  Sex: Female

DRUGS (2)
  1. SKYRIZI [Suspect]
     Active Substance: RISANKIZUMAB-RZAA
     Indication: Psoriasis
     Route: 058
     Dates: start: 20220519
  2. HUMIRA [Suspect]
     Active Substance: ADALIMUMAB
     Indication: Psoriasis
     Route: 058
     Dates: start: 20181204, end: 20191016

REACTIONS (8)
  - Colitis [Unknown]
  - Constipation [Unknown]
  - Dehydration [Unknown]
  - Vomiting [Unknown]
  - Malaise [Unknown]
  - Abdominal pain upper [Unknown]
  - Rash [Unknown]
  - Skin ulcer [Unknown]

NARRATIVE: CASE EVENT DATE: 20220101
